FAERS Safety Report 4695004-8 (Version None)
Quarter: 2005Q2

REPORT INFORMATION
  Report Type: 
  Country: None (occurrence: None)
  Receive Date: 20050617
  Receipt Date: 20050609
  Transmission Date: 20051028
  Serious: Yes (Hospitalization)
  Sender: FDA-Public Use
  Company Number: 2005-06-0594

PATIENT
  Age: 61 Year
  Sex: Male

DRUGS (2)
  1. PEG-INTRON [Suspect]
     Indication: HEPATITIS C
     Dosage: QW SUBCUTANEOUS
     Route: 058
     Dates: start: 20050107, end: 20050601
  2. REBETOL [Suspect]
     Indication: HEPATITIS C
     Dosage: 200 MG ORAL
     Route: 048
     Dates: start: 20050107, end: 20050601

REACTIONS (1)
  - CEREBRAL INFARCTION [None]
